FAERS Safety Report 8395674-7 (Version None)
Quarter: 2012Q2

REPORT INFORMATION
  Report Type: 
  Country: None (occurrence: None)
  Receive Date: 20120530
  Receipt Date: 20120213
  Transmission Date: 20120825
  Serious: No
  Sender: FDA-Public Use
  Company Number: US-GLAXOSMITHKLINE-A0966112A

PATIENT
  Sex: Male

DRUGS (1)
  1. VENTOLIN [Suspect]
     Route: 055

REACTIONS (1)
  - BREATH ALCOHOL TEST POSITIVE [None]
